FAERS Safety Report 7088532-1 (Version None)
Quarter: 2010Q4

REPORT INFORMATION
  Report Type: 
  Country: None (occurrence: None)
  Receive Date: 20101108
  Receipt Date: 20101029
  Transmission Date: 20110411
  Serious: Yes (Congenital Anomaly)
  Sender: FDA-Public Use
  Company Number: FR-PFIZER INC-2010137970

PATIENT
  Sex: Male
  Weight: 3.75 kg

DRUGS (4)
  1. SALAZOPYRINE [Suspect]
     Indication: ANKYLOSING SPONDYLITIS
     Dosage: 500 MG, 4X/DAY
     Route: 064
  2. XANAX [Suspect]
     Indication: DEPRESSION
     Dosage: 1 AND A HALF TABLET A DAY
     Route: 064
  3. HUMIRA [Suspect]
     Indication: ANKYLOSING SPONDYLITIS
     Dosage: 40 MG, EVERY 5-6 DAYS
     Route: 064
     Dates: end: 20090916
  4. PROZAC [Suspect]
     Indication: DEPRESSION
     Dosage: 1 DOSAGE FORM DAILY
     Route: 064

REACTIONS (2)
  - AMNIOTIC BAND SYNDROME [None]
  - DRUG EXPOSURE DURING PREGNANCY [None]
